FAERS Safety Report 14895739 (Version 1)
Quarter: 2018Q2

REPORT INFORMATION
  Report Type: Report from Study
  Country: GB (occurrence: GB)
  Receive Date: 20180515
  Receipt Date: 20180515
  Transmission Date: 20180711
  Serious: Yes (Other)
  Sender: FDA-Public Use
  Company Number: PHFR2017GB006850

PATIENT
  Sex: Female

DRUGS (2)
  1. COSENTYX [Suspect]
     Active Substance: SECUKINUMAB
     Indication: PRODUCT USED FOR UNKNOWN INDICATION
     Dosage: 300 MG, QMO (150 MG, TWO PENS)
     Route: 058
     Dates: start: 20170620
  2. COSENTYX [Suspect]
     Active Substance: SECUKINUMAB
     Dosage: 300 MG, QMO (150 MG, TWO PENS)
     Route: 058
     Dates: start: 20170728

REACTIONS (3)
  - Malaise [Unknown]
  - Ear infection [Recovering/Resolving]
  - Pharyngitis [Unknown]
